FAERS Safety Report 4902128-6 (Version None)
Quarter: 2006Q1

REPORT INFORMATION
  Report Type: 
  Country: None (occurrence: None)
  Receive Date: 20060206
  Receipt Date: 20030605
  Transmission Date: 20060701
  Serious: Yes (Hospitalization, Disabling)
  Sender: FDA-Public Use
  Company Number: US-MERCK-0306USA00798

PATIENT
  Age: 53 Year
  Sex: Female
  Weight: 70 kg

DRUGS (4)
  1. VIOXX [Suspect]
     Indication: PAIN IN EXTREMITY
     Route: 048
     Dates: start: 19991101, end: 20010101
  2. VIOXX [Suspect]
     Indication: BACK PAIN
     Route: 048
     Dates: start: 19991101, end: 20010101
  3. ROBAXIN [Concomitant]
     Route: 065
  4. LOTREL [Concomitant]
     Route: 065

REACTIONS (39)
  - ABDOMINAL PAIN UPPER [None]
  - ASTHENIA [None]
  - BARRETT'S OESOPHAGUS [None]
  - BREAST CYST [None]
  - BREAST PAIN [None]
  - BRONCHITIS [None]
  - CARPAL TUNNEL SYNDROME [None]
  - CERVICOBRACHIAL SYNDROME [None]
  - CHEST PAIN [None]
  - COORDINATION ABNORMAL [None]
  - CYSTITIS [None]
  - DEPRESSION [None]
  - DIABETES MELLITUS [None]
  - DIARRHOEA [None]
  - DIZZINESS [None]
  - DYSPHAGIA [None]
  - DYSPNOEA [None]
  - EPISTAXIS [None]
  - EROSIVE OESOPHAGITIS [None]
  - GALLBLADDER DISORDER [None]
  - GASTROOESOPHAGEAL REFLUX DISEASE [None]
  - HEADACHE [None]
  - HELICOBACTER GASTRITIS [None]
  - HIATUS HERNIA [None]
  - HYPERTENSION [None]
  - INTERVERTEBRAL DISC DEGENERATION [None]
  - IRRITABLE BOWEL SYNDROME [None]
  - LOSS OF CONSCIOUSNESS [None]
  - MYOCARDIAL ISCHAEMIA [None]
  - NECK INJURY [None]
  - NECK PAIN [None]
  - OEDEMA PERIPHERAL [None]
  - PAIN IN EXTREMITY [None]
  - PHARYNGITIS [None]
  - ROAD TRAFFIC ACCIDENT [None]
  - SINUSITIS [None]
  - STRESS [None]
  - SYNCOPE [None]
  - VAGINAL INFECTION [None]
